FAERS Safety Report 17864138 (Version 2)
Quarter: 2020Q2

REPORT INFORMATION
  Report Type: Spontaneous
  Country: US (occurrence: US)
  Receive Date: 20200605
  Receipt Date: 20200608
  Transmission Date: 20200714
  Serious: No
  Sender: FDA-Public Use
  Company Number: US-TEVA-2020-US-1243415

PATIENT
  Sex: Female

DRUGS (1)
  1. BUPROPION HYDROCHLORIDE. [Suspect]
     Active Substance: BUPROPION HYDROCHLORIDE
     Indication: DEPRESSION
     Dosage: SHE HAS TAKEN THE PRODUCT FOR YEARS
     Route: 065

REACTIONS (4)
  - Dyspepsia [Recovering/Resolving]
  - Lethargy [Recovering/Resolving]
  - Abdominal pain [Recovering/Resolving]
  - Product odour abnormal [Unknown]
